FAERS Safety Report 11636182 (Version 3)
Quarter: 2016Q1

REPORT INFORMATION
  Report Type: Spontaneous
  Country: US (occurrence: US)
  Receive Date: 20151016
  Receipt Date: 20160113
  Transmission Date: 20160525
  Serious: Yes (Other)
  Sender: FDA-Public Use
  Company Number: US-BAYER-2015-438923

PATIENT
  Age: 22 Year
  Sex: Female

DRUGS (1)
  1. MIRENA [Suspect]
     Active Substance: LEVONORGESTREL
     Indication: CONTRACEPTION
     Dosage: 20 MCG/24HR, CONT
     Route: 015
     Dates: start: 20130314

REACTIONS (19)
  - Headache [None]
  - Ulcer [None]
  - Pelvic pain [None]
  - Vomiting [None]
  - Abdominal pain upper [None]
  - Aggression [None]
  - Nausea [None]
  - Diarrhoea [None]
  - Sepsis [None]
  - Vulvovaginal pain [None]
  - Genital haemorrhage [None]
  - Cystitis [None]
  - Rectal haemorrhage [None]
  - Embedded device [None]
  - Pain [None]
  - Contusion [None]
  - Malaise [None]
  - Crohn^s disease [None]
  - Muscle spasms [None]

NARRATIVE: CASE EVENT DATE: 2013
